FAERS Safety Report 6655566-8 (Version None)
Quarter: 2010Q1

REPORT INFORMATION
  Report Type: 
  Country: None (occurrence: None)
  Receive Date: 20100329
  Receipt Date: 20100325
  Transmission Date: 20100710
  Serious: Yes (Other)
  Sender: FDA-Public Use
  Company Number: JP-SANOFI-AVENTIS-2010SA017364

PATIENT
  Age: 30 Year
  Sex: Male

DRUGS (3)
  1. AMARYL [Suspect]
  2. NU-LOTAN [Concomitant]
  3. ACTOS [Concomitant]

REACTIONS (1)
  - BLOOD CREATINE PHOSPHOKINASE INCREASED [None]
